FAERS Safety Report 4894442-8 (Version None)
Quarter: 2006Q1

REPORT INFORMATION
  Report Type: 
  Country: None (occurrence: None)
  Receive Date: 20060127
  Receipt Date: 20060113
  Transmission Date: 20060701
  Serious: Yes (Death)
  Sender: FDA-Public Use
  Company Number: FR-ROCHE-431869

PATIENT
  Age: 66 Year
  Sex: Male
  Weight: 79 kg

DRUGS (4)
  1. CAPECITABINE [Suspect]
     Dosage: 7 DAYS ON TREATMENT AND 7 DAYS OFF.
     Route: 048
     Dates: start: 20051122, end: 20051230
  2. BEVACIZUMAB [Suspect]
     Dosage: IN 30 MINUTES.
     Route: 042
     Dates: start: 20051122, end: 20051230
  3. OXALIPLATIN [Suspect]
     Dosage: IN 2 HOURS. 7 DAYS ON TREATMENT AND 7 DAYS OFF.
     Route: 042
     Dates: start: 20051122, end: 20051230
  4. ERLOTINIB [Suspect]
     Dosage: DURING CHEMOTHERAPY FREE INTERVAL.
     Route: 048
     Dates: start: 20051122, end: 20051230

REACTIONS (1)
  - DIARRHOEA [None]
